FAERS Safety Report 17159113 (Version 2)
Quarter: 2019Q4

REPORT INFORMATION
  Report Type: Spontaneous
  Country: JP (occurrence: JP)
  Receive Date: 20191216
  Receipt Date: 20191219
  Transmission Date: 20200122
  Serious: Yes (Hospitalization, Other)
  Sender: FDA-Public Use
  Company Number: JP-PFIZER INC-2019537753

PATIENT
  Age: 65 Year
  Sex: Male
  Weight: 66 kg

DRUGS (6)
  1. BAKUMONDOTO [Concomitant]
     Active Substance: HERBALS
     Dosage: 3 G, 3X/DAY (BETWEEN MEALS)
  2. NORVASC [Suspect]
     Active Substance: AMLODIPINE BESYLATE
     Indication: HYPERTENSION
     Dosage: 5 MG, DAILY
     Route: 048
  3. METFORMIN HYDROCHLORIDE 250MG MT PFIZER [Suspect]
     Active Substance: METFORMIN HYDROCHLORIDE
     Indication: TYPE 2 DIABETES MELLITUS
     Dosage: 250 MG, 3X/DAY(AFTER EACH MEAL)
     Route: 048
  4. MYSLEE [Concomitant]
     Active Substance: ZOLPIDEM TARTRATE
     Indication: INSOMNIA
     Dosage: 5 MG, UNK (1 TABLET AT THE TIME OF INSOMNIA FOR 10 DOSES)
  5. CADETHIA [Concomitant]
     Dosage: 1 DF, 1X/DAY  (CANDESARTAN CILEXETIL 8 MG/HYDROCHLOROTHIAZIDE 6.25 MG, AFTER BREAKFAST)
  6. BEZATOL [Concomitant]
     Active Substance: BEZAFIBRATE
     Dosage: 200 MG, 1X/DAY (AFTER DINNER)

REACTIONS (1)
  - Lactic acidosis [Recovered/Resolved]

NARRATIVE: CASE EVENT DATE: 20191009
